FAERS Safety Report 26008906 (Version 2)
Quarter: 2025Q4

REPORT INFORMATION
  Report Type: Spontaneous
  Country: US (occurrence: US)
  Receive Date: 20251106
  Receipt Date: 20251127
  Transmission Date: 20260118
  Serious: Yes (Hospitalization, Other)
  Sender: STRIDES
  Company Number: US-STRIDES ARCOLAB LIMITED-2025SP013776

PATIENT
  Age: 74 Year
  Sex: Male

DRUGS (3)
  1. METHOTREXATE [Suspect]
     Active Substance: METHOTREXATE
     Indication: Arthritis
     Dosage: 20 MG, ONCE A WEEK
     Route: 065
  2. HYDROXYCHLOROQUINE [Concomitant]
     Active Substance: HYDROXYCHLOROQUINE
     Indication: Arthritis
     Dosage: UNK
     Route: 065
  3. ACYCLOVIR [Concomitant]
     Active Substance: ACYCLOVIR
     Indication: Herpes simplex test positive
     Dosage: UNK
     Route: 065

REACTIONS (9)
  - Mucosal inflammation [Unknown]
  - Neutropenia [Unknown]
  - Leukoencephalopathy [Unknown]
  - Pulmonary fibrosis [Unknown]
  - Rash [Unknown]
  - Toxicity to various agents [Unknown]
  - Transcription medication error [Unknown]
  - Inappropriate schedule of product administration [Unknown]
  - Off label use [Unknown]
